FAERS Safety Report 12899347 (Version 1)
Quarter: 2016Q4

REPORT INFORMATION
  Report Type: Spontaneous
  Country: US (occurrence: US)
  Receive Date: 20161101
  Receipt Date: 20161101
  Transmission Date: 20170207
  Serious: No
  Sender: FDA-Public Use
  Company Number: US-ABBVIE-16P-163-1633100-00

PATIENT
  Sex: Female

DRUGS (1)
  1. BIAXIN [Suspect]
     Active Substance: CLARITHROMYCIN
     Indication: INFECTION
     Dosage: TOOK 3 DOSES
     Route: 048

REACTIONS (4)
  - Drug hypersensitivity [Recovered/Resolved]
  - Vomiting [Recovered/Resolved]
  - Ulcer [Recovered/Resolved]
  - Nausea [Recovered/Resolved]
